FAERS Safety Report 9401195 (Version 2)
Quarter: 2013Q3

REPORT INFORMATION
  Report Type: Report from Study
  Country: CA (occurrence: CA)
  Receive Date: 20130715
  Receipt Date: 20130913
  Transmission Date: 20140515
  Serious: Yes (Other)
  Sender: FDA-Public Use
  Company Number: CA-JNJFOC-20130707465

PATIENT
  Sex: Female
  Weight: 62 kg

DRUGS (1)
  1. REMICADE [Suspect]
     Indication: RHEUMATOID ARTHRITIS
     Dosage: TOTAL NUMBER OF INFUSIONS RECEIVED WAS 43 APPROXIMATELY
     Route: 042
     Dates: start: 20090520, end: 20130410

REACTIONS (1)
  - Lung neoplasm malignant [Unknown]
